FAERS Safety Report 4579469-8 (Version None)
Quarter: 2005Q1

REPORT INFORMATION
  Report Type: 
  Country: None (occurrence: None)
  Receive Date: 20050209
  Receipt Date: 20050126
  Transmission Date: 20050727
  Serious: Yes (Death)
  Sender: FDA-Public Use
  Company Number: EWC040539350

PATIENT
  Age: 36 Year
  Sex: Male

DRUGS (4)
  1. ZYPREXA [Suspect]
     Indication: PSYCHOMOTOR AGITATION
     Dosage: 10 MG
     Dates: start: 20040506, end: 20040506
  2. TAVOR (LORAZEPAM) [Concomitant]
  3. TALOFEN (PROMAZINE HYDROCHLORIDE) [Concomitant]
  4. SEROQUEL [Concomitant]

REACTIONS (8)
  - ANTIPSYCHOTIC DRUG LEVEL ABOVE THERAPEUTIC [None]
  - ARRHYTHMIA [None]
  - CARDIAC ARREST [None]
  - CARDIAC DISORDER [None]
  - CONDITION AGGRAVATED [None]
  - LIVER DISORDER [None]
  - MENTAL DISORDER [None]
  - PULMONARY OEDEMA [None]
